FAERS Safety Report 23230346 (Version 1)
Quarter: 2023Q4

REPORT INFORMATION
  Report Type: Spontaneous
  Country: CA (occurrence: CA)
  Receive Date: 20231127
  Receipt Date: 20231127
  Transmission Date: 20240109
  Serious: Yes (Other)
  Sender: FDA-Public Use
  Company Number: CA-SA-SAC20231121000809

PATIENT
  Age: 55 Year
  Sex: Female

DRUGS (4)
  1. AUBAGIO [Suspect]
     Active Substance: TERIFLUNOMIDE
     Indication: Multiple sclerosis
     Dosage: UNK
     Dates: start: 2004, end: 202302
  2. TYLENOL [Concomitant]
     Active Substance: ACETAMINOPHEN
     Dosage: UNK
  3. DOXYLAMINE SUCCINATE [Concomitant]
     Active Substance: DOXYLAMINE SUCCINATE
     Dosage: UNK
  4. VITAMIN D NOS [Concomitant]
     Active Substance: VITAMIN D NOS
     Dosage: UNK

REACTIONS (9)
  - Optic neuritis [Unknown]
  - Visual impairment [Unknown]
  - Macular degeneration [Unknown]
  - Multiple sclerosis relapse [Unknown]
  - Fine motor skill dysfunction [Unknown]
  - Spinal pain [Unknown]
  - Mobility decreased [Unknown]
  - Muscular weakness [Unknown]
  - Alopecia [Unknown]
